FAERS Safety Report 7003917-7 (Version None)
Quarter: 2010Q3

REPORT INFORMATION
  Report Type: 
  Country: None (occurrence: None)
  Receive Date: 20100917
  Receipt Date: 20100803
  Transmission Date: 20110219
  Serious: Yes (Other)
  Sender: FDA-Public Use
  Company Number: 2010AP001898

PATIENT
  Sex: Male

DRUGS (1)
  1. KETOTIFEN FUMARATE [Suspect]
     Dosage: OPH
     Route: 047

REACTIONS (7)
  - EYE DISORDER [None]
  - EYE IRRITATION [None]
  - EYE PRURITUS [None]
  - HEADACHE [None]
  - OCULAR HYPERAEMIA [None]
  - PHOTOPHOBIA [None]
  - VISUAL ACUITY REDUCED [None]
